FAERS Safety Report 13800921 (Version 1)
Quarter: 2017Q3

REPORT INFORMATION
  Report Type: Spontaneous
  Country: GB (occurrence: CA)
  Receive Date: 20170727
  Receipt Date: 20170727
  Transmission Date: 20171127
  Serious: Yes (Life-Threatening, Hospitalization, Disabling)
  Sender: FDA-Public Use
  Company Number: GB-PFIZER INC-1398690

PATIENT
  Age: 60 Year
  Sex: Male
  Weight: 108.6 kg

DRUGS (44)
  1. VINCRISTINE SULFATE. [Suspect]
     Active Substance: VINCRISTINE SULFATE
     Indication: DIFFUSE LARGE B-CELL LYMPHOMA
     Dosage: 2 MG, 1 IN 3 WK
     Route: 042
     Dates: start: 20111205
  2. ACETAMINOPHEN. [Concomitant]
     Active Substance: ACETAMINOPHEN
     Dosage: NOT REPORTED, NOT REPORTED
     Dates: start: 20111205, end: 20120515
  3. AVAPRO [Concomitant]
     Active Substance: IRBESARTAN
     Dosage: NOT REPORTED, NOT REPORTED
     Dates: start: 20120725
  4. CLAVULIN /00756801/ [Concomitant]
     Active Substance: AMOXICILLIN\CLAVULANIC ACID
     Indication: CELLULITIS
     Dosage: NOT REPORTED, NOT REPORTED
  5. FLUDROCORTISONE [Concomitant]
     Active Substance: FLUDROCORTISONE
     Dosage: NOT REPORTED, NOT REPORTED
     Dates: start: 20120703, end: 20120725
  6. RANITIDINE. [Concomitant]
     Active Substance: RANITIDINE
     Dosage: NOT REPORTED, NOT REPORTED
     Dates: start: 20111205, end: 20120515
  7. PREDNISOLONE. [Suspect]
     Active Substance: PREDNISOLONE
     Indication: DIFFUSE LARGE B-CELL LYMPHOMA
     Dosage: 800 MG, 1 IN 3 WK
     Route: 048
     Dates: start: 20111205
  8. COLCHICINE. [Concomitant]
     Active Substance: COLCHICINE
     Indication: PAIN
     Dosage: NOT REPORTED, NOT REPORTED
     Dates: start: 20120714, end: 20120714
  9. GRANISETRON [Concomitant]
     Active Substance: GRANISETRON
     Dosage: NOT REPORTED, NOT REPORTED
     Dates: start: 20111205, end: 20120515
  10. HUMULIN NOS [Concomitant]
     Active Substance: INSULIN HUMAN
     Indication: DIABETES MELLITUS
     Dosage: NOT REPORTED, NOT REPORTED
     Dates: start: 20120109, end: 20120109
  11. POTASSIUM CHLORIDE. [Concomitant]
     Active Substance: POTASSIUM CHLORIDE
     Indication: BLOOD POTASSIUM DECREASED
     Dosage: NOT REPORTED, NOT REPORTED
     Dates: start: 20120703, end: 20120706
  12. SAXAGLIPTIN HYDROCHLORIDE. [Concomitant]
     Active Substance: SAXAGLIPTIN HYDROCHLORIDE
     Indication: DIABETES MELLITUS
     Dosage: NOT REPORTED, NOT REPORTED
  13. ASCORBIC ACID. [Concomitant]
     Active Substance: ASCORBIC ACID
     Dosage: NOT REPORTED, NOT REPORTED
     Dates: start: 20111118
  14. GLUCOSAMINE SULFATE [Concomitant]
     Active Substance: GLUCOSAMINE SULFATE
     Dosage: NOT REPORTED, NOT REPORTED
  15. NEUPOGEN [Concomitant]
     Active Substance: FILGRASTIM
     Indication: NEUTROPENIA
     Dosage: NOT REPORTED, NOT REPORTED
     Dates: start: 20120717, end: 20120720
  16. PIOGLITAZONE HYDROCHLORIDE. [Concomitant]
     Active Substance: PIOGLITAZONE HYDROCHLORIDE
     Indication: DIABETES MELLITUS
     Dosage: NOT REPORTED, NOT REPORTED
     Dates: start: 20120625
  17. VITAMIN B12 [Concomitant]
     Active Substance: CYANOCOBALAMIN
     Indication: VITAMIN B12 DEFICIENCY
     Dosage: NOT REPORTED, NOT REPORTED
     Dates: start: 20120326
  18. DOXORUBICIN HYDROCHLORIDE. [Suspect]
     Active Substance: DOXORUBICIN HYDROCHLORIDE
     Indication: DIFFUSE LARGE B-CELL LYMPHOMA
     Dosage: 111 MG, 1 IN 3 WK
     Route: 042
     Dates: start: 20111205
  19. ENOXAPARIN [Concomitant]
     Active Substance: ENOXAPARIN
     Dosage: NOT REPORTED, NOT REPORTED
     Dates: start: 20120129, end: 20120129
  20. FENOFIBRATE. [Concomitant]
     Active Substance: FENOFIBRATE
     Indication: HYPERCHOLESTEROLAEMIA
     Dosage: NOT REPORTED, NOT REPORTED
     Dates: start: 20120725
  21. FENTANYL. [Concomitant]
     Active Substance: FENTANYL
     Indication: PAIN
     Dosage: NOT REPORTED, NOT REPORTED
     Dates: start: 20120707, end: 20120709
  22. ISOPHANE INSULIN [Concomitant]
     Active Substance: INSULIN NOS
     Indication: DIABETES MELLITUS
     Dosage: NOT REPORTED, NOT REPORTED
  23. SOLU-MEDROL [Concomitant]
     Active Substance: METHYLPREDNISOLONE SODIUM SUCCINATE
     Indication: HYPOTENSION
     Dosage: NOT REPORTED, NOT REPORTED
     Dates: start: 20111216, end: 20111216
  24. FLUDROCORTISONE [Concomitant]
     Active Substance: FLUDROCORTISONE
     Indication: ADDISON^S DISEASE
     Dosage: NOT REPORTED, NOT REPORTED
     Dates: start: 20120109, end: 20120109
  25. MOMETASONE [Concomitant]
     Active Substance: MOMETASONE
     Indication: NASAL CONGESTION
     Dosage: NOT REPORTED, NOT REPORTED
     Dates: start: 20120714, end: 20120725
  26. VITAMIN D /00107901/ [Concomitant]
     Active Substance: ERGOCALCIFEROL
     Dosage: NOT REPORTED, NOT REPORTED
     Dates: start: 20111128
  27. CRESTOR [Concomitant]
     Active Substance: ROSUVASTATIN CALCIUM
     Indication: HYPERCHOLESTEROLAEMIA
     Dosage: NOT REPORTED, NOT REPORTED
  28. DOCUSATE SODIUM. [Concomitant]
     Active Substance: DOCUSATE SODIUM
     Indication: CONSTIPATION
     Dosage: NOT REPORTED, NOT REPORTED
     Dates: start: 20120707, end: 20120725
  29. FLUDROCORTISONE [Concomitant]
     Active Substance: FLUDROCORTISONE
     Indication: PYREXIA
     Dosage: NOT REPORTED, NOT REPORTED
     Dates: start: 20120326
  30. FLUDROCORTISONE [Concomitant]
     Active Substance: FLUDROCORTISONE
     Dosage: NOT REPORTED, NOT REPORTED
     Dates: start: 20120725, end: 20120725
  31. HEPARIN SODIUM. [Concomitant]
     Active Substance: HEPARIN SODIUM
     Indication: THROMBOSIS
     Dosage: NOT REPORTED, NOT REPORTED
     Dates: start: 20120703, end: 20120714
  32. KETOROLAC [Concomitant]
     Active Substance: KETOROLAC\KETOROLAC TROMETHAMINE
     Indication: PAIN
     Dosage: NOT REPORTED, NOT REPORTED
     Dates: start: 20120707, end: 20120725
  33. METFORMIN [Concomitant]
     Active Substance: METFORMIN HYDROCHLORIDE
     Indication: DIABETES MELLITUS
     Dosage: NOT REPORTED, NOT REPORTED
  34. OXYCOCET [Concomitant]
     Active Substance: ACETAMINOPHEN\OXYCODONE HYDROCHLORIDE
     Indication: PAIN IN EXTREMITY
     Dosage: UNK
     Dates: start: 20120703, end: 20120704
  35. CYCLOPHOSPHAMIDE. [Suspect]
     Active Substance: CYCLOPHOSPHAMIDE
     Indication: DIFFUSE LARGE B-CELL LYMPHOMA
     Dosage: 1670 MG, 1 IN 3 WK
     Route: 042
     Dates: start: 20111205
  36. PREDNISOLONE. [Suspect]
     Active Substance: PREDNISOLONE
     Dosage: 80 MG, 1 IN 3 WK
     Route: 048
     Dates: start: 20120703, end: 20120725
  37. ALEVE [Concomitant]
     Active Substance: NAPROXEN SODIUM
     Indication: PAIN IN EXTREMITY
     Dosage: NOT REPORTED, NOT REPORTED
     Dates: start: 20111108
  38. AVAPRO [Concomitant]
     Active Substance: IRBESARTAN
     Indication: HYPERTENSION
     Dosage: NOT REPORTED, NOT REPORTED
  39. DIPHENHYDRAMINE. [Concomitant]
     Active Substance: DIPHENHYDRAMINE
     Dosage: NOT REPORTED, NOT REPORTED
     Dates: start: 20111205, end: 20120515
  40. HYDROCORTISONE. [Concomitant]
     Active Substance: HYDROCORTISONE
     Indication: PYREXIA
     Dosage: NOT REPORTED, NOT REPORTED
     Dates: start: 20120109, end: 20120109
  41. MORPHINE [Concomitant]
     Active Substance: MORPHINE
     Indication: PAIN
     Dosage: NOT REPORTED, NOT REPORTED
     Dates: start: 20120707, end: 20120725
  42. SILVER SULFADIAZINE. [Concomitant]
     Active Substance: SILVER SULFADIAZINE
     Indication: BLISTER
     Dosage: NOT REPORTED, NOT REPORTED
     Dates: start: 20120327
  43. SODIUM CHLORIDE. [Concomitant]
     Active Substance: SODIUM CHLORIDE
     Indication: DEHYDRATION
     Dosage: NOT REPORTED, NOT REPORTED
     Dates: start: 20120719, end: 20120721
  44. VALTREX [Concomitant]
     Active Substance: VALACYCLOVIR HYDROCHLORIDE
     Indication: HERPES SIMPLEX
     Dosage: NOT REPORTED, NOT REPORTED
     Dates: start: 20120423

REACTIONS (11)
  - Hypotension [Recovered/Resolved]
  - White blood cell count decreased [Recovered/Resolved]
  - Febrile neutropenia [Recovered/Resolved]
  - Acute myocardial infarction [Not Recovered/Not Resolved]
  - Pyrexia [Recovered/Resolved]
  - Cellulitis [Recovered/Resolved]
  - Fatigue [Recovered/Resolved]
  - Cardiomyopathy [Not Recovered/Not Resolved]
  - Adrenal insufficiency [Recovered/Resolved]
  - Constipation [Recovered/Resolved]
  - Chills [Recovered/Resolved]

NARRATIVE: CASE EVENT DATE: 2011
